FAERS Safety Report 15935842 (Version 1)
Quarter: 2019Q1

REPORT INFORMATION
  Report Type: Spontaneous
  Country: US (occurrence: US)
  Receive Date: 20190208
  Receipt Date: 20190208
  Transmission Date: 20190417
  Serious: Yes (Other)
  Sender: FDA-Public Use
  Company Number: US-PFIZER INC-2018152007

PATIENT
  Age: 51 Year
  Sex: Male
  Weight: 109 kg

DRUGS (2)
  1. SOMAVERT [Suspect]
     Active Substance: PEGVISOMANT
     Dosage: 15 MG, DAILY
  2. SOMAVERT [Suspect]
     Active Substance: PEGVISOMANT
     Dosage: 10 MG, DAILY
     Dates: start: 20180310

REACTIONS (23)
  - Diabetes mellitus [Unknown]
  - Fatigue [Unknown]
  - Insulin-like growth factor increased [Unknown]
  - Blood chloride decreased [Unknown]
  - Vitamin D decreased [Unknown]
  - Low density lipoprotein increased [Unknown]
  - Blood growth hormone increased [Unknown]
  - Cortisol decreased [Unknown]
  - Blood testosterone decreased [Unknown]
  - Basophil count increased [Unknown]
  - Blood glucose increased [Unknown]
  - Hyperlipidaemia [Unknown]
  - Pituitary tumour [Unknown]
  - Sinusitis [Unknown]
  - Blood cholesterol increased [Unknown]
  - Blood 1,25-dihydroxycholecalciferol decreased [Unknown]
  - Hypogonadism [Unknown]
  - Blood calcium decreased [Unknown]
  - Glycosylated haemoglobin increased [Unknown]
  - Monocyte count increased [Unknown]
  - Blood triglycerides increased [Unknown]
  - Blood thyroid stimulating hormone decreased [Unknown]
  - Eosinophil count increased [Unknown]

NARRATIVE: CASE EVENT DATE: 20180710
